FAERS Safety Report 8016718-8 (Version None)
Quarter: 2012Q1

REPORT INFORMATION
  Report Type: 
  Country: None (occurrence: None)
  Receive Date: 20120102
  Receipt Date: 20111221
  Transmission Date: 20120608
  Serious: Yes (Hospitalization)
  Sender: FDA-Public Use
  Company Number: US-BIOGENIDEC-2011BI039581

PATIENT
  Age: 38 Year
  Sex: Female

DRUGS (1)
  1. AVONEX [Suspect]
     Indication: MULTIPLE SCLEROSIS
     Route: 030
     Dates: start: 20101214

REACTIONS (6)
  - PNEUMONIA [None]
  - MYOCARDIAL INFARCTION [None]
  - FATIGUE [None]
  - SYNCOPE [None]
  - STRESS [None]
  - ARRHYTHMIA [None]
